FAERS Safety Report 23999973 (Version 1)
Quarter: 2024Q2

REPORT INFORMATION
  Report Type: Spontaneous
  Country: US (occurrence: None)
  Receive Date: 20240621
  Receipt Date: 20240621
  Transmission Date: 20240716
  Serious: Yes (Hospitalization)
  Sender: FDA-Public Use
  Company Number: None

PATIENT
  Sex: Female

DRUGS (1)
  1. CAPECITABINE [Suspect]
     Active Substance: CAPECITABINE
     Indication: Colon cancer
     Dosage: TAKE 2 TABLETS BY MOUTH EVERY 12 HOURS FOR 14 DAYS, THEN OFF 7 DAYS?
     Route: 048
     Dates: start: 202109

REACTIONS (1)
  - Hospitalisation [None]
